FAERS Safety Report 15694182 (Version 2)
Quarter: 2018Q4

REPORT INFORMATION
  Report Type: Report from Study
  Country: IT (occurrence: IT)
  Receive Date: 20181206
  Receipt Date: 20181226
  Transmission Date: 20190205
  Serious: Yes (Hospitalization, Other)
  Sender: FDA-Public Use
  Company Number: PHHY2018IT174691

PATIENT
  Age: 59 Year
  Sex: Female
  Weight: 63 kg

DRUGS (1)
  1. GILENYA [Suspect]
     Active Substance: FINGOLIMOD HYDROCHLORIDE
     Indication: MULTIPLE SCLEROSIS
     Dosage: .5 MG, QD
     Route: 048
     Dates: start: 20130405, end: 20180815

REACTIONS (21)
  - Antineutrophil cytoplasmic antibody positive [Unknown]
  - Rubella antibody positive [Unknown]
  - Pericarditis [Recovered/Resolved]
  - Infection [Unknown]
  - C-reactive protein increased [Unknown]
  - Pyrexia [Recovered/Resolved]
  - Chest pain [Recovered/Resolved]
  - Osteoarthritis [Unknown]
  - Blood immunoglobulin G increased [Unknown]
  - Alpha-1 acid glycoprotein increased [Unknown]
  - Acute coronary syndrome [Unknown]
  - Cytomegalovirus test positive [Unknown]
  - Blood immunoglobulin G decreased [Unknown]
  - Mycoplasma test positive [Unknown]
  - Iron binding capacity total decreased [Unknown]
  - Psoriatic arthropathy [Unknown]
  - Artery dissection [Unknown]
  - Autoimmune disorder [Unknown]
  - Transferrin decreased [Unknown]
  - Blood thyroid stimulating hormone decreased [Unknown]
  - High density lipoprotein increased [Unknown]

NARRATIVE: CASE EVENT DATE: 20180814
